FAERS Safety Report 23544938 (Version 1)
Quarter: 2024Q1

REPORT INFORMATION
  Report Type: Spontaneous
  Country: DE (occurrence: DE)
  Receive Date: 20240220
  Receipt Date: 20240220
  Transmission Date: 20240409
  Serious: Yes (Death, Hospitalization, Other)
  Sender: FDA-Public Use
  Company Number: None

PATIENT
  Age: 76 Year
  Sex: Male
  Weight: 94 kg

DRUGS (17)
  1. LENALIDOMIDE [Suspect]
     Active Substance: LENALIDOMIDE
     Indication: Plasma cell myeloma
     Dosage: 5 MG
     Route: 048
     Dates: start: 20221213, end: 20230102
  2. DARATUMUMAB [Suspect]
     Active Substance: DARATUMUMAB
     Indication: Plasma cell myeloma
     Dosage: 16 MG/KG
     Route: 042
     Dates: start: 20221025
  3. DEXAMETHASONE [Suspect]
     Active Substance: DEXAMETHASONE
     Indication: Plasma cell myeloma
     Dosage: 20 MG
     Route: 048
     Dates: start: 20221102
  4. ACYCLOVIR [Concomitant]
     Active Substance: ACYCLOVIR
     Indication: Prophylaxis
     Dosage: 400 MG
     Route: 048
     Dates: start: 20220919
  5. ATORVASTATIN [Concomitant]
     Active Substance: ATORVASTATIN
     Indication: Arteriosclerosis
     Dosage: 10 MG, QD
     Route: 048
  6. BISACODYL [Concomitant]
     Active Substance: BISACODYL
     Indication: Prophylaxis
     Dosage: 10 MG
     Route: 054
  7. CANDESARTAN [Concomitant]
     Active Substance: CANDESARTAN
     Indication: Arteriosclerosis coronary artery
     Dosage: 16 MG, QD
     Route: 048
  8. EDOXABAN [Concomitant]
     Active Substance: EDOXABAN
     Indication: Arteriosclerosis coronary artery
     Dosage: 60 MG, QD
     Route: 048
  9. EPLERENONE [Concomitant]
     Active Substance: EPLERENONE
     Indication: Prophylaxis
     Dosage: 25 MG, QD
     Route: 048
  10. Magnesium citrate and Magnesium glutamate [Concomitant]
     Indication: Prophylaxis
     Dosage: 40 MG, QD
     Route: 048
  11. METAMIZOLE [Concomitant]
     Active Substance: METAMIZOLE
     Indication: Prophylaxis
     Dosage: 500 MG, 0.25/DAY
     Route: 048
  12. NALOXONE [Concomitant]
     Active Substance: NALOXONE
     Indication: Prophylaxis
     Dosage: 50 MG, 0.5 DAY
     Route: 048
  13. NATRIUMHYDROGENKARBONAT [Concomitant]
     Indication: Prophylaxis
     Dosage: 13.12 MG
     Route: 048
  14. ONDANSETRON [Concomitant]
     Active Substance: ONDANSETRON
     Indication: Prophylaxis
     Dosage: 8 MG
     Route: 048
     Dates: start: 20220919
  15. PREDNISONE [Concomitant]
     Active Substance: PREDNISONE
     Indication: Prophylaxis
     Dosage: 20 MG, QW
     Route: 048
     Dates: start: 20220920
  16. ALBUTEROL [Concomitant]
     Active Substance: ALBUTEROL
     Indication: Prophylaxis
     Dosage: 0.1 MG
     Route: 048
  17. TROSPIUM CHLORIDE [Concomitant]
     Active Substance: TROSPIUM CHLORIDE
     Indication: Prophylaxis
     Dosage: 45 MG, 0.33 DAY
     Route: 048

REACTIONS (3)
  - Myocardial infarction [Fatal]
  - Atrial fibrillation [Recovered/Resolved]
  - Plasma cell myeloma [Fatal]

NARRATIVE: CASE EVENT DATE: 20230222
